FAERS Safety Report 5084988-4 (Version None)
Quarter: 2006Q3

REPORT INFORMATION
  Report Type: 
  Country: None (occurrence: None)
  Receive Date: 20060815
  Receipt Date: 20060731
  Transmission Date: 20061208
  Serious: Yes (Hospitalization, Other)
  Sender: FDA-Public Use
  Company Number: US-2006-002247

PATIENT
  Age: 58 Year
  Sex: Female

DRUGS (17)
  1. BETASERON [Suspect]
     Indication: RELAPSING-REMITTING MULTIPLE SCLEROSIS
     Dosage: SEE IMAGE
     Route: 058
     Dates: start: 20050417, end: 20060206
  2. BETASERON [Suspect]
     Indication: RELAPSING-REMITTING MULTIPLE SCLEROSIS
     Dosage: SEE IMAGE
     Route: 058
     Dates: start: 20060201
  3. DEPAKOTE [Concomitant]
  4. DONNATAL (PHENOBARBITAL, HYOSCYAMINE SULFATE, HYOSCINEHYDROBRMIDE, ATR [Concomitant]
  5. LASIX [Concomitant]
  6. INDERAL LA [Concomitant]
  7. ZOLOFT [Concomitant]
  8. HYDROXYZINE HCL [Concomitant]
  9. NABUMETONE [Concomitant]
  10. FLOMAX ^BOEHRINGER INGELHEIM^ (TAMSULOSIN HYDROCHLORID) [Concomitant]
  11. NEXIUM [Concomitant]
  12. FAMOTIDINE [Concomitant]
  13. TIGAN [Concomitant]
  14. SPIROLONE [Concomitant]
  15. ALBUTEROL SPIROS [Concomitant]
  16. DIAZEPAM [Concomitant]
  17. ZYRTEC [Concomitant]

REACTIONS (18)
  - ANAEMIA [None]
  - ANTICONVULSANT DRUG LEVEL DECREASED [None]
  - ASTHENIA [None]
  - BLOOD POTASSIUM DECREASED [None]
  - BLOOD PRESSURE IMMEASURABLE [None]
  - BONE PAIN [None]
  - CONDITION AGGRAVATED [None]
  - CONFUSIONAL STATE [None]
  - CONTUSION [None]
  - FALL [None]
  - GRAND MAL CONVULSION [None]
  - HYPOTENSION [None]
  - HYPOVENTILATION [None]
  - MEMORY IMPAIRMENT [None]
  - MYALGIA [None]
  - PULSE ABSENT [None]
  - RESPIRATORY ARREST [None]
  - RETCHING [None]
